FAERS Safety Report 6969596-X (Version None)
Quarter: 2010Q3

REPORT INFORMATION
  Report Type: 
  Country: None (occurrence: None)
  Receive Date: 20100902
  Receipt Date: 20100824
  Transmission Date: 20110219
  Serious: Yes (Life-Threatening, Hospitalization, Disabling)
  Sender: FDA-Public Use
  Company Number: 2010SP045433

PATIENT
  Age: 33 Year
  Sex: Female

DRUGS (5)
  1. NUVARING [Suspect]
     Indication: CONTRACEPTION
     Dates: start: 20080501
  2. ADVAIR DISKUS 100/50 [Concomitant]
  3. LEXAPRO [Concomitant]
  4. CALCIUM WITH VITAMIN D [Concomitant]
  5. ALBUTEROL [Concomitant]

REACTIONS (2)
  - COLLAPSE OF LUNG [None]
  - PULMONARY EMBOLISM [None]
